FAERS Safety Report 18823828 (Version 1)
Quarter: 2021Q1

REPORT INFORMATION
  Report Type: Spontaneous
  Country: US (occurrence: US)
  Receive Date: 20210202
  Receipt Date: 20210202
  Transmission Date: 20210419
  Serious: No
  Sender: FDA-Public Use
  Company Number: US-SA-2021SA030484

PATIENT
  Sex: Male
  Weight: 47.2 kg

DRUGS (4)
  1. CLOCORTOLONE PIVALATE. [Concomitant]
     Active Substance: CLOCORTOLONE PIVALATE
  2. PIMECROLIMUS. [Concomitant]
     Active Substance: PIMECROLIMUS
     Dosage: 1 %
  3. ZYRTEC?D [Concomitant]
     Active Substance: CETIRIZINE HYDROCHLORIDE\PSEUDOEPHEDRINE HYDROCHLORIDE
     Dosage: 05 MG?120 MG
  4. DUPIXENT [Suspect]
     Active Substance: DUPILUMAB
     Indication: DERMATITIS ATOPIC
     Dosage: 300 MG, Q4W
     Route: 058
     Dates: start: 20200721

REACTIONS (1)
  - Therapeutic product effect decreased [Unknown]
